FAERS Safety Report 5717796-9 (Version None)
Quarter: 2008Q2

REPORT INFORMATION
  Report Type: 
  Country: None (occurrence: None)
  Receive Date: 20080425
  Receipt Date: 20080409
  Transmission Date: 20081010
  Serious: Yes (Other)
  Sender: FDA-Public Use
  Company Number: US-BAYER-200811572BCC

PATIENT
  Age: 19 Year
  Sex: Female
  Weight: 64 kg

DRUGS (2)
  1. MIDOL [Suspect]
     Indication: MENSTRUAL DISCOMFORT
     Dosage: AS USED: 2 DF
     Route: 048
     Dates: start: 20080407, end: 20080407
  2. MIDOL [Suspect]
     Dosage: AS USED: 2 DF
     Route: 048
     Dates: start: 20080409, end: 20080409

REACTIONS (3)
  - DIZZINESS [None]
  - NAUSEA [None]
  - SYNCOPE [None]
